FAERS Safety Report 9880126 (Version 2)
Quarter: 2014Q1

REPORT INFORMATION
  Report Type: Spontaneous
  Country: BR (occurrence: BR)
  Receive Date: 20140207
  Receipt Date: 20140207
  Transmission Date: 20141002
  Serious: Yes (Other)
  Sender: FDA-Public Use
  Company Number: BR-AMGEN-BRASP2012052384

PATIENT
  Age: 79 Year
  Sex: Female
  Weight: 52 kg

DRUGS (6)
  1. ENBREL [Suspect]
     Indication: RHEUMATOID ARTHRITIS
     Dosage: 50 MG, QWK
     Route: 058
     Dates: start: 201102, end: 20131220
  2. ENBREL [Suspect]
     Dosage: 25 MG, 2 TIMES/WK
     Route: 058
  3. RISEDRONATE SODIUM [Concomitant]
     Dosage: UNK
  4. CARDIZEM                           /00489702/ [Concomitant]
     Dosage: 60 MG, 1X/DAY
  5. OSTEONUTRI [Concomitant]
     Dosage: 600 CALCIUM PHOSPHATE PLUS 400 COLECALCIFEROL (UNSPECIFIED UNIT), ONCE A DAY
  6. VITAMIN D                          /00107901/ [Concomitant]
     Dosage: 50 DROPS, TWICE WEEKLY

REACTIONS (6)
  - Product quality issue [Unknown]
  - Rheumatoid arthritis [Not Recovered/Not Resolved]
  - Injection site pain [Unknown]
  - Pain [Not Recovered/Not Resolved]
  - Musculoskeletal stiffness [Unknown]
  - Joint lock [Unknown]
